FAERS Safety Report 8460428-X (Version None)
Quarter: 2012Q2

REPORT INFORMATION
  Report Type: 
  Country: None (occurrence: None)
  Receive Date: 20120622
  Receipt Date: 20120613
  Transmission Date: 20120825
  Serious: Yes (Hospitalization)
  Sender: FDA-Public Use
  Company Number: US-ABBOTT-12P-163-0945793-00

PATIENT
  Age: 53 Year
  Sex: Female

DRUGS (5)
  1. FLAGYL [Suspect]
     Indication: POUCHITIS
     Dates: start: 20120501, end: 20120501
  2. HUMIRA [Suspect]
     Indication: CROHN'S DISEASE
     Dates: start: 20100101
  3. VICODIN [Concomitant]
     Indication: PRODUCT USED FOR UNKNOWN INDICATION
  4. NEXIUM [Concomitant]
     Indication: PRODUCT USED FOR UNKNOWN INDICATION
  5. VITAMIN TAB [Concomitant]
     Indication: PRODUCT USED FOR UNKNOWN INDICATION

REACTIONS (5)
  - GASTRIC DISORDER [None]
  - POUCHITIS [None]
  - ABDOMINAL PAIN [None]
  - MUSCLE SPASMS [None]
  - DIARRHOEA [None]
